FAERS Safety Report 25680915 (Version 1)
Quarter: 2025Q3

REPORT INFORMATION
  Report Type: Spontaneous
  Country: US (occurrence: US)
  Receive Date: 20250814
  Receipt Date: 20250814
  Transmission Date: 20251021
  Serious: Yes (Other)
  Sender: BAYER HEALTHCARE PHARMACEUTICALS INC.
  Company Number: US-BAYER-2025A106351

PATIENT
  Age: 63 Year
  Sex: Male

DRUGS (3)
  1. JIVI [Suspect]
     Active Substance: DAMOCTOCOG ALFA PEGOL
     Route: 042
     Dates: start: 20250716, end: 20250718
  2. JIVI [Suspect]
     Active Substance: DAMOCTOCOG ALFA PEGOL
     Route: 042
     Dates: start: 20250723, end: 20250723
  3. JIVI [Suspect]
     Active Substance: DAMOCTOCOG ALFA PEGOL
     Route: 042
     Dates: start: 20250803, end: 20250803

REACTIONS (5)
  - Haemarthrosis [None]
  - Haemarthrosis [None]
  - Joint injury [None]
  - Limb injury [None]
  - Abdominal pain upper [None]

NARRATIVE: CASE EVENT DATE: 20250101
